FAERS Safety Report 20058982 (Version 2)
Quarter: 2021Q4

REPORT INFORMATION
  Report Type: Spontaneous
  Country: GB (occurrence: GB)
  Receive Date: 20211111
  Receipt Date: 20211126
  Transmission Date: 20220303
  Serious: Yes (Death, Other)
  Sender: FDA-Public Use
  Company Number: None

PATIENT
  Sex: Male
  Weight: 92 kg

DRUGS (13)
  1. NITROGLYCERIN [Suspect]
     Active Substance: NITROGLYCERIN
     Indication: Product used for unknown indication
     Dosage: 1 DF, PUFF
     Route: 060
     Dates: start: 20200326
  2. HYDROCORTISONE [Suspect]
     Active Substance: HYDROCORTISONE
     Indication: Product used for unknown indication
     Dosage: ACTUAL: REPORTED AS ^1 DF, BID, APPLY SPARINGLY TO THE AFFECTED AREA^
     Dates: start: 20211001
  3. CHOLECALCIFEROL [Suspect]
     Active Substance: CHOLECALCIFEROL
     Indication: Product used for unknown indication
     Dosage: UNK, QAM
     Dates: start: 20210122
  4. FLUOROURACIL [Suspect]
     Active Substance: FLUOROURACIL
     Indication: Product used for unknown indication
     Dosage: APPLY ONCE TO TWICE DAILY FOR 3-4 WEEKS
     Dates: start: 20211001
  5. CALCIUM CARBONATE\SODIUM ALGINATE\SODIUM BICARBONATE [Suspect]
     Active Substance: CALCIUM CARBONATE\SODIUM ALGINATE\SODIUM BICARBONATE
     Indication: Product used for unknown indication
     Dosage: 10 ML, QID
     Route: 048
     Dates: start: 20210910
  6. DABIGATRAN ETEXILATE [Suspect]
     Active Substance: DABIGATRAN ETEXILATE
     Indication: Anticoagulant therapy
     Dosage: ACTUAL: REPORTED AS ^1 DF, BID, TO THIN BLOOD^
     Dates: start: 20211015
  7. DILTIAZEM [Suspect]
     Active Substance: DILTIAZEM
     Indication: Product used for unknown indication
     Dosage: 1 DF, QAM
     Dates: start: 20201109
  8. ISOPROPYL MYRISTATE\PARAFFIN [Suspect]
     Active Substance: ISOPROPYL MYRISTATE\PARAFFIN
     Indication: Product used for unknown indication
     Dosage: ACTUAL: REPORTED AS ^ 1 DF, DAILY, APPLY^
     Dates: start: 20200326
  9. OMEPRAZOLE [Suspect]
     Active Substance: OMEPRAZOLE
     Indication: Product used for unknown indication
     Dosage: 10 MG, QD
     Route: 048
     Dates: start: 20210910, end: 20211015
  10. ACETAMINOPHEN [Suspect]
     Active Substance: ACETAMINOPHEN
     Indication: Product used for unknown indication
     Dosage: 2 DF, QID
     Dates: start: 20210122
  11. RAMIPRIL [Suspect]
     Active Substance: RAMIPRIL
     Indication: Blood pressure measurement
     Dosage: 1 DF, QD
     Dates: start: 20201015
  12. TAMSULOSIN HYDROCHLORIDE [Suspect]
     Active Substance: TAMSULOSIN HYDROCHLORIDE
     Indication: Product used for unknown indication
     Dosage: 1 DF, QD
     Dates: start: 20210219
  13. BENZALKONIUM CHLORIDE\DIMETHICONE\HYDROCORTISONE\NYSTATIN [Suspect]
     Active Substance: BENZALKONIUM CHLORIDE\DIMETHICONE\HYDROCORTISONE\NYSTATIN
     Indication: Skin lesion
     Dosage: ACTUAL: REPORTED AS ^1 DF, TID, APPLY UNTIL THE LESIONS HAVE HEALED^
     Dates: start: 20210910, end: 20210924

REACTIONS (3)
  - Death [Fatal]
  - Erythema multiforme [Unknown]
  - Incorrect route of product administration [Unknown]

NARRATIVE: CASE EVENT DATE: 20200326
